FAERS Safety Report 6233768-2 (Version None)
Quarter: 2009Q2

REPORT INFORMATION
  Report Type: 
  Country: None (occurrence: None)
  Receive Date: 20090616
  Receipt Date: 20090616
  Transmission Date: 20091009
  Serious: Yes (Life-Threatening)
  Sender: FDA-Public Use
  Company Number: None

PATIENT
  Sex: Male
  Weight: 68.0396 kg

DRUGS (1)
  1. BUPROPION SR 200MG [Suspect]
     Indication: MAJOR DEPRESSION
     Dosage: 200 MG OD PO
     Route: 048
     Dates: start: 20090408, end: 20090520

REACTIONS (9)
  - DYSPNOEA [None]
  - EYELID OEDEMA [None]
  - GAIT DISTURBANCE [None]
  - GENITAL SWELLING [None]
  - LIP SWELLING [None]
  - OEDEMA PERIPHERAL [None]
  - SWOLLEN TONGUE [None]
  - THROAT TIGHTNESS [None]
  - URTICARIA [None]
